FAERS Safety Report 8395059-3 (Version None)
Quarter: 2012Q2

REPORT INFORMATION
  Report Type: 
  Country: None (occurrence: None)
  Receive Date: 20120530
  Receipt Date: 20120521
  Transmission Date: 20120825
  Serious: Yes (Hospitalization)
  Sender: FDA-Public Use
  Company Number: JP-VERTEX PHARMACEUTICALS INC.-AE-2012-007725

PATIENT
  Age: 66 Year
  Sex: Male

DRUGS (8)
  1. TELAVIC (TELAPREVIR) [Suspect]
     Indication: HEPATITIS C
     Route: 048
     Dates: start: 20120319, end: 20120514
  2. DIOVAN [Concomitant]
     Route: 048
  3. RIBAVIRIN [Concomitant]
     Route: 048
     Dates: start: 20120430, end: 20120514
  4. NIZATIDINE [Concomitant]
     Route: 048
  5. PEG-INTRON [Concomitant]
     Indication: HEPATITIS C
     Route: 051
     Dates: start: 20120319, end: 20120514
  6. URSO 250 [Concomitant]
     Route: 048
  7. RIBAVIRIN [Concomitant]
     Route: 048
     Dates: start: 20120319, end: 20120429
  8. NORVASC [Concomitant]
     Route: 048

REACTIONS (3)
  - DRUG ERUPTION [None]
  - PYREXIA [None]
  - HYPERURICAEMIA [None]
